FAERS Safety Report 16827558 (Version 2)
Quarter: 2019Q3

REPORT INFORMATION
  Report Type: Spontaneous
  Country: HK (occurrence: HK)
  Receive Date: 20190919
  Receipt Date: 20190919
  Transmission Date: 20191005
  Serious: Yes (Other)
  Sender: FDA-Public Use
  Company Number: HK-PFIZER INC-2019388505

PATIENT
  Age: 13 Year
  Sex: Male

DRUGS (27)
  1. PREDNISOLONE. [Suspect]
     Active Substance: PREDNISOLONE
     Indication: IMMUNOSUPPRESSION
     Dosage: 35 MG, DAILY
  2. TACROLIMUS. [Concomitant]
     Active Substance: TACROLIMUS
     Dosage: 11 MG, DAILY (ON ADMISSION)
  3. TACROLIMUS. [Concomitant]
     Active Substance: TACROLIMUS
     Dosage: 12 MG, DAILY
  4. TACROLIMUS. [Concomitant]
     Active Substance: TACROLIMUS
     Dosage: 11 MG, DAILY (DOSAGE OF THE DRUG UPON ADMISSION)
  5. MYCOPHENOLATE MOFETIL. [Concomitant]
     Active Substance: MYCOPHENOLATE MOFETIL
     Dosage: 600 MG/M2, 2X/DAY
  6. PREDNISOLONE. [Suspect]
     Active Substance: PREDNISOLONE
     Dosage: 0.8 MG/KG, DAILY
  7. MYCOPHENOLATE MOFETIL. [Concomitant]
     Active Substance: MYCOPHENOLATE MOFETIL
     Dosage: 750 MG, UNK (ON ADMISSION)
  8. METHYLPREDNISOLONE. [Suspect]
     Active Substance: METHYLPREDNISOLONE
     Indication: TRANSPLANT REJECTION
     Dosage: 4 DOSES OF 0.5 G PULSE
  9. PREDNISOLONE. [Suspect]
     Active Substance: PREDNISOLONE
     Dosage: 25 MG, DAILY
  10. TACROLIMUS. [Concomitant]
     Active Substance: TACROLIMUS
     Indication: IMMUNOSUPPRESSION
     Dosage: 10 MG, DAILY
  11. TACROLIMUS. [Concomitant]
     Active Substance: TACROLIMUS
     Dosage: 16 MG, DAILY
  12. TACROLIMUS. [Concomitant]
     Active Substance: TACROLIMUS
     Dosage: 10 MG, DAILY
  13. TACROLIMUS. [Concomitant]
     Active Substance: TACROLIMUS
     Dosage: 10 MG, DAILY
  14. TACROLIMUS. [Concomitant]
     Active Substance: TACROLIMUS
     Dosage: 8 MG, DAILY
  15. MYCOPHENOLATE MOFETIL. [Concomitant]
     Active Substance: MYCOPHENOLATE MOFETIL
     Indication: TRANSPLANT REJECTION
     Dosage: 750 MG, DAILY
  16. MYCOPHENOLATE MOFETIL. [Concomitant]
     Active Substance: MYCOPHENOLATE MOFETIL
     Dosage: 1250 MG, DAILY (DOSAGE OF THE DRUG UPON ADMISSION)
  17. PREDNISOLONE. [Suspect]
     Active Substance: PREDNISOLONE
     Dosage: 10 MG, DAILY
  18. TACROLIMUS. [Concomitant]
     Active Substance: TACROLIMUS
     Dosage: 4 MG, DAILY
  19. TACROLIMUS. [Concomitant]
     Active Substance: TACROLIMUS
     Dosage: 0.8 MG/KG, UNK
  20. MYCOPHENOLATE MOFETIL. [Concomitant]
     Active Substance: MYCOPHENOLATE MOFETIL
     Dosage: 1500 MG, DAILY
  21. BASILIXIMAB [Concomitant]
     Active Substance: BASILIXIMAB
     Indication: IMMUNOSUPPRESSION
     Dosage: 20 MG, DAILY (2 DOSES)
     Route: 042
  22. METHYLPREDNISOLONE. [Suspect]
     Active Substance: METHYLPREDNISOLONE
     Dosage: 500 MG FOR 4 DAYS
  23. PREDNISOLONE. [Suspect]
     Active Substance: PREDNISOLONE
     Dosage: 5 MG, DAILY
  24. PREDNISOLONE. [Suspect]
     Active Substance: PREDNISOLONE
     Dosage: 30 MG, DAILY
  25. PREDNISOLONE. [Suspect]
     Active Substance: PREDNISOLONE
     Dosage: 15 MG, DAILY (DOSAGE OF THE DRUG UPON ADMISSION)
  26. TACROLIMUS. [Concomitant]
     Active Substance: TACROLIMUS
     Dosage: 14 MG, DAILY
  27. TACROLIMUS. [Concomitant]
     Active Substance: TACROLIMUS
     Dosage: 12 MG, DAILY

REACTIONS (1)
  - Steroid diabetes [Unknown]
